FAERS Safety Report 9061295 (Version 1)
Quarter: 2013Q1

REPORT INFORMATION
  Report Type: Spontaneous
  Country: GB (occurrence: GB)
  Receive Date: 20130204
  Receipt Date: 20130204
  Transmission Date: 20140127
  Serious: Yes (Other)
  Sender: FDA-Public Use
  Company Number: GB-ASTELLAS-2013EU000842

PATIENT
  Sex: Female

DRUGS (1)
  1. VESICARE [Suspect]
     Indication: HYPERTONIC BLADDER
     Dosage: 5 UNK, UNKNOWN/D
     Route: 065

REACTIONS (1)
  - Visual acuity reduced [Not Recovered/Not Resolved]
